FAERS Safety Report 19359999 (Version 1)
Quarter: 2021Q2

REPORT INFORMATION
  Report Type: Spontaneous
  Country: HR (occurrence: HR)
  Receive Date: 20210602
  Receipt Date: 20210602
  Transmission Date: 20210717
  Serious: Yes (Other)
  Sender: FDA-Public Use
  Company Number: NVSC2021HR117564

PATIENT
  Age: 41 Year
  Sex: Male

DRUGS (4)
  1. APAURIN [Concomitant]
     Active Substance: DIAZEPAM
     Indication: ANXIETY
     Dosage: 10 MG, 0.5 (10MG; 2X1)
     Route: 048
     Dates: start: 2012
  2. SANVAL [Suspect]
     Active Substance: ZOLPIDEM TARTRATE
     Indication: INSOMNIA
     Dosage: 5 MG, QD (5 MG, 1 X 1)
     Route: 048
     Dates: start: 202102
  3. GLICLADA [Concomitant]
     Active Substance: GLICLAZIDE
     Indication: TYPE 2 DIABETES MELLITUS
     Dosage: 30 MG,QD (30MG; 1X1)
     Route: 048
     Dates: start: 2016
  4. ZIPANTOLA [Concomitant]
     Active Substance: PANTOPRAZOLE SODIUM
     Indication: GASTROOESOPHAGEAL REFLUX DISEASE
     Dosage: 20 MG,QD (20MG; 1X1)
     Route: 048
     Dates: start: 2017

REACTIONS (3)
  - Delirium [Not Recovered/Not Resolved]
  - Night sweats [Not Recovered/Not Resolved]
  - Nightmare [Not Recovered/Not Resolved]

NARRATIVE: CASE EVENT DATE: 202102
